FAERS Safety Report 16034504 (Version 3)
Quarter: 2019Q2

REPORT INFORMATION
  Report Type: Spontaneous
  Country: US (occurrence: US)
  Receive Date: 20190305
  Receipt Date: 20190617
  Transmission Date: 20190711
  Serious: Yes (Hospitalization)
  Sender: FDA-Public Use
  Company Number: US-PFIZER INC-2019092633

PATIENT
  Age: 65 Year
  Sex: Female
  Weight: 72.56 kg

DRUGS (1)
  1. DILANTIN [Suspect]
     Active Substance: PHENYTOIN
     Indication: SEIZURE
     Dosage: 400 MG, 2X/DAY (TWO IN THE MORNING AND TWO AT NIGHT)
     Route: 048
     Dates: start: 2003

REACTIONS (11)
  - Asthenia [Not Recovered/Not Resolved]
  - Fatigue [Unknown]
  - Dyskinesia [Recovered/Resolved]
  - Lung disorder [Unknown]
  - Cough [Unknown]
  - Malaise [Not Recovered/Not Resolved]
  - Pneumonia [Recovered/Resolved]
  - Dysphonia [Unknown]
  - Throat clearing [Unknown]
  - Dizziness [Unknown]
  - Somnolence [Unknown]

NARRATIVE: CASE EVENT DATE: 201810
